FAERS Safety Report 5682222-5 (Version None)
Quarter: 2008Q1

REPORT INFORMATION
  Report Type: 
  Country: None (occurrence: None)
  Receive Date: 20080327
  Receipt Date: 20080319
  Transmission Date: 20080703
  Serious: Yes (Hospitalization, Other)
  Sender: FDA-Public Use
  Company Number: PHBS2008US03483

PATIENT
  Age: 77 Year
  Sex: Male

DRUGS (4)
  1. METOPROLOL TARTRATE [Suspect]
     Dosage: 25 MG, BID
  2. CODEINE SUL TAB [Suspect]
     Dosage: UNK, PRN
  3. FAMOTIDINE [Concomitant]
     Dosage: 20 MG, BID
  4. HEPARIN [Concomitant]
     Dosage: 5000 IU, Q8H
     Route: 058

REACTIONS (26)
  - ABDOMINAL DISTENSION [None]
  - ABDOMINAL PAIN [None]
  - ASTHENIA [None]
  - COLITIS ISCHAEMIC [None]
  - COLONIC FISTULA [None]
  - CONSTIPATION [None]
  - CREATININE URINE INCREASED [None]
  - HEART RATE DECREASED [None]
  - HYPERKALAEMIA [None]
  - ILEOSTOMY [None]
  - INTESTINAL OBSTRUCTION [None]
  - LAPAROTOMY [None]
  - MALAISE [None]
  - NAUSEA [None]
  - PELVIC EXENTERATION [None]
  - PELVIC PERITONEAL ADHESIONS [None]
  - POSTOPERATIVE ADHESION [None]
  - PYREXIA [None]
  - RADIOTHERAPY [None]
  - RECTAL CANCER [None]
  - RECTAL HAEMORRHAGE [None]
  - URETERIC DIVERSION OPERATION [None]
  - URINARY BLADDER EXCISION [None]
  - URINARY FISTULA [None]
  - VOMITING [None]
  - WEIGHT DECREASED [None]
